FAERS Safety Report 11865945 (Version 3)
Quarter: 2016Q1

REPORT INFORMATION
  Report Type: Report from Study
  Country: AR (occurrence: AR)
  Receive Date: 20151223
  Receipt Date: 20160303
  Transmission Date: 20160526
  Serious: Yes (Other)
  Sender: FDA-Public Use
  Company Number: AR-ABBVIE-15K-007-1525251-00

PATIENT
  Age: 69 Year
  Sex: Female

DRUGS (3)
  1. HUMIRA [Suspect]
     Active Substance: ADALIMUMAB
     Indication: RHEUMATOID ARTHRITIS
     Route: 058
     Dates: start: 20150421
  2. PREGABALINE [Concomitant]
     Active Substance: PREGABALIN
     Indication: PAIN
  3. DIOXAFLEX [Concomitant]
     Active Substance: DICLOFENAC SODIUM
     Indication: PAIN

REACTIONS (6)
  - Joint injury [Not Recovered/Not Resolved]
  - Joint dislocation [Recovering/Resolving]
  - Joint injury [Unknown]
  - Fall [Unknown]
  - Arthralgia [Recovering/Resolving]
  - Fall [Not Recovered/Not Resolved]

NARRATIVE: CASE EVENT DATE: 201510
